FAERS Safety Report 5868520-0 (Version None)
Quarter: 2008Q3

REPORT INFORMATION
  Report Type: 
  Country: None (occurrence: None)
  Receive Date: 20080902
  Receipt Date: 20080902
  Transmission Date: 20090109
  Serious: Yes (Life-Threatening, Hospitalization, Other)
  Sender: FDA-Public Use
  Company Number: None

PATIENT
  Age: 52 Year
  Sex: Female
  Weight: 104.3273 kg

DRUGS (1)
  1. SEROQUEL [Suspect]
     Indication: MENTAL DISORDER
     Dosage: 400 MG. DAILY
     Dates: start: 20000601, end: 20021001

REACTIONS (18)
  - AKATHISIA [None]
  - AUTOIMMUNE DISORDER [None]
  - BACK PAIN [None]
  - CONFUSIONAL STATE [None]
  - DIABETES MELLITUS [None]
  - DRUG WITHDRAWAL SYNDROME [None]
  - DYSTONIA [None]
  - FATIGUE [None]
  - HYPERHIDROSIS [None]
  - INCONTINENCE [None]
  - INSOMNIA [None]
  - PANCREATITIS ACUTE [None]
  - PANIC ATTACK [None]
  - PARAESTHESIA [None]
  - PSYCHOMOTOR HYPERACTIVITY [None]
  - SEDATION [None]
  - THERAPEUTIC AGENT TOXICITY [None]
  - TREMOR [None]
